FAERS Safety Report 9447388 (Version 1)
Quarter: 2013Q3

REPORT INFORMATION
  Report Type: Spontaneous
  Country: AU (occurrence: AU)
  Receive Date: 20130808
  Receipt Date: 20130808
  Transmission Date: 20140515
  Serious: Yes (Other)
  Sender: FDA-Public Use
  Company Number: AU-ABBOTT-13X-008-1130478-00

PATIENT
  Age: 63 Year
  Sex: Male

DRUGS (9)
  1. EPILIM [Suspect]
     Indication: EPILEPSY
     Dosage: 400 MILLIGRAM(S); UNKNOWN
     Route: 065
     Dates: start: 201209
  2. EPILIM [Suspect]
     Route: 065
  3. EPILIM [Suspect]
     Route: 065
     Dates: start: 20130725
  4. LITHIUM [Concomitant]
     Indication: PRODUCT USED FOR UNKNOWN INDICATION
  5. LIPIDIL [Concomitant]
     Indication: PRODUCT USED FOR UNKNOWN INDICATION
  6. THYROXIN [Concomitant]
     Indication: PRODUCT USED FOR UNKNOWN INDICATION
  7. PANTOPRAZOLE [Concomitant]
     Indication: PRODUCT USED FOR UNKNOWN INDICATION
  8. WARFARIN [Concomitant]
     Indication: PRODUCT USED FOR UNKNOWN INDICATION
  9. FISH OIL [Concomitant]
     Indication: PRODUCT USED FOR UNKNOWN INDICATION

REACTIONS (5)
  - Retching [Unknown]
  - Petit mal epilepsy [Unknown]
  - Vomiting [Unknown]
  - Somnolence [Unknown]
  - Elevated mood [Unknown]
